FAERS Safety Report 17552785 (Version 1)
Quarter: 2020Q1

REPORT INFORMATION
  Report Type: Spontaneous
  Country: US (occurrence: US)
  Receive Date: 20200318
  Receipt Date: 20200318
  Transmission Date: 20200409
  Serious: No
  Sender: FDA-Public Use
  Company Number: US-BIOGEN-2020BI00847149

PATIENT
  Sex: Female

DRUGS (1)
  1. TECFIDERA [Suspect]
     Active Substance: DIMETHYL FUMARATE
     Indication: MULTIPLE SCLEROSIS
     Route: 048
     Dates: start: 20130617, end: 20190901

REACTIONS (6)
  - Balance disorder [Unknown]
  - Tremor [Not Recovered/Not Resolved]
  - Muscle twitching [Unknown]
  - Depression [Not Recovered/Not Resolved]
  - Asthenia [Unknown]
  - Hypersensitivity [Recovered/Resolved]
